FAERS Safety Report 10089715 (Version 2)
Quarter: 2014Q2

REPORT INFORMATION
  Report Type: Report from Study
  Country: ES (occurrence: ES)
  Receive Date: 20140421
  Receipt Date: 20140505
  Transmission Date: 20141212
  Serious: Yes (Other)
  Sender: FDA-Public Use
  Company Number: ES-009507513-1404ESP007946

PATIENT
  Age: 56 Year
  Sex: Male
  Weight: 100 kg

DRUGS (8)
  1. BOCEPREVIR [Suspect]
     Indication: CHRONIC HEPATITIS C
     Dosage: 800 MG, TID
     Route: 048
     Dates: start: 20130221, end: 20131227
  2. RIBAVIRIN [Suspect]
     Indication: CHRONIC HEPATITIS C
     Dosage: 600 MG, BID
     Route: 048
     Dates: start: 20130221, end: 20131227
  3. PEGASYS [Suspect]
     Indication: CHRONIC HEPATITIS C
     Dosage: 180 MCG PER WEEK
     Route: 058
     Dates: start: 20130205, end: 20131220
  4. OMEPRAZOLE [Concomitant]
     Dosage: 20 MG PER DAY
     Route: 048
     Dates: start: 20081204
  5. HIDROSALURETIL [Concomitant]
     Dosage: 50 MG PER DAY
     Route: 048
     Dates: start: 20081204
  6. ALLOPURINOL [Concomitant]
     Dosage: 100 MG PER DAY
     Route: 048
     Dates: start: 20081204
  7. ENALAPRIL MALEATE [Concomitant]
     Dosage: 20 MG PER DAY
     Route: 048
     Dates: start: 20081204
  8. ACETAMINOPHEN [Concomitant]
     Dosage: 1 G WHEN IT IS NEEDED
     Route: 048
     Dates: start: 20130113, end: 20131220

REACTIONS (2)
  - Anaemia macrocytic [Recovered/Resolved]
  - Neutropenia [Recovered/Resolved]
